FAERS Safety Report 8943095 (Version 1)
Quarter: 2012Q4

REPORT INFORMATION
  Report Type: 
  Country: US (occurrence: US)
  Receive Date: 20121204
  Receipt Date: 20121204
  Transmission Date: 20130627
  Serious: Yes (Other)
  Sender: FDA-Public Use
  Company Number: US-AMGEN-USASP2012076682

PATIENT
  Sex: Female

DRUGS (15)
  1. EPOGEN [Suspect]
     Indication: RENAL FAILURE CHRONIC
     Dosage: UNK
     Dates: start: 2010
  2. SENSIPAR [Suspect]
     Indication: HYPERPARATHYROIDISM SECONDARY
     Dosage: 30 mg, qd
  3. CALCIUM ACETATE [Concomitant]
     Dosage: UNK
  4. COUMADIN                           /00014802/ [Concomitant]
     Dosage: UNK
  5. OMEPRAZOLE [Concomitant]
     Dosage: UNK
  6. TOPAMAX [Concomitant]
     Dosage: UNK
  7. CALCITRIOL [Concomitant]
     Dosage: UNK
  8. SINGULAIR [Concomitant]
     Dosage: UNK
  9. VENOFER [Concomitant]
     Dosage: UNK
  10. JANTOVEN [Concomitant]
     Dosage: UNK
  11. PRISTIQ [Concomitant]
     Dosage: UNK
  12. TRICOR                             /00090101/ [Concomitant]
     Dosage: UNK
  13. ATENOLOL [Concomitant]
     Dosage: UNK
  14. VYTORIN [Concomitant]
     Dosage: UNK
  15. ERGOCALCIFEROL [Concomitant]
     Dosage: UNK

REACTIONS (1)
  - Haemoglobin decreased [Unknown]
